FAERS Safety Report 4780948-9 (Version None)
Quarter: 2005Q3

REPORT INFORMATION
  Report Type: 
  Country: None (occurrence: None)
  Receive Date: 20050926
  Receipt Date: 20050919
  Transmission Date: 20060218
  Serious: Yes (Death, Other)
  Sender: FDA-Public Use
  Company Number: 2005-06-0987

PATIENT
  Age: 49 Year
  Sex: Male

DRUGS (1)
  1. INTRON A [Suspect]
     Indication: CHRONIC MYELOID LEUKAEMIA
     Dosage: 9 X 10^6 U QD

REACTIONS (7)
  - ASPERGILLOSIS [None]
  - BONE MARROW DEPRESSION [None]
  - HEPATOSPLENOMEGALY [None]
  - MARROW HYPERPLASIA [None]
  - PYREXIA [None]
  - RETICULIN INCREASED [None]
  - THERAPY NON-RESPONDER [None]
